FAERS Safety Report 10582670 (Version 2)
Quarter: 2015Q1

REPORT INFORMATION
  Report Type: Spontaneous
  Country: CM (occurrence: CM)
  Receive Date: 20141113
  Receipt Date: 20150121
  Transmission Date: 20150720
  Serious: Yes (Life-Threatening, Hospitalization, Disabling, Other)
  Sender: FDA-Public Use
  Company Number: CM-MERCK-1411CMR003890

PATIENT
  Age: 7 Year
  Sex: Male
  Weight: 18 kg

DRUGS (6)
  1. MECTIZAN [Suspect]
     Active Substance: IVERMECTIN
     Indication: FILARIASIS LYMPHATIC
     Dosage: 01 DF, ONCE
     Route: 048
     Dates: start: 20141007, end: 20141007
  2. ALBENDAZOLE [Suspect]
     Active Substance: ALBENDAZOLE
     Indication: ONCHOCERCIASIS
  3. ASCABIOL [Concomitant]
     Active Substance: BENZYL BENZOATE
  4. MECTIZAN [Suspect]
     Active Substance: IVERMECTIN
     Indication: ONCHOCERCIASIS
  5. CLOXACILLIN [Concomitant]
     Active Substance: CLOXACILLIN
     Route: 048
  6. ALBENDAZOLE [Suspect]
     Active Substance: ALBENDAZOLE
     Indication: FILARIASIS LYMPHATIC
     Dosage: 1 DF, ONCE
     Dates: start: 20141007, end: 20141007

REACTIONS (2)
  - Abasia [Recovered/Resolved]
  - Toxic epidermal necrolysis [Recovered/Resolved]

NARRATIVE: CASE EVENT DATE: 20141008
